FAERS Safety Report 26056984 (Version 1)
Quarter: 2025Q4

REPORT INFORMATION
  Report Type: Spontaneous
  Country: US (occurrence: US)
  Receive Date: 20251118
  Receipt Date: 20251118
  Transmission Date: 20260117
  Serious: No
  Sender: AMNEAL
  Company Number: US-AMNEAL PHARMACEUTICALS-2025-AMRX-01747

PATIENT
  Age: 36 Year
  Sex: Female
  Weight: 88.435 kg

DRUGS (2)
  1. ISOTRETINOIN [Suspect]
     Active Substance: ISOTRETINOIN
     Indication: Product used for unknown indication
     Dosage: 01 CAPSULES, (10 MG)  1 /DAY
     Route: 048
     Dates: start: 20240820
  2. ISOTRETINOIN [Suspect]
     Active Substance: ISOTRETINOIN
     Dosage: 20 MILLIGRAM CAPSULE
     Route: 048

REACTIONS (2)
  - Aspartate aminotransferase increased [Unknown]
  - Abdominal pain [Unknown]

NARRATIVE: CASE EVENT DATE: 20250301
